FAERS Safety Report 5126524-X (Version None)
Quarter: 2006Q4

REPORT INFORMATION
  Report Type: 
  Country: None (occurrence: None)
  Receive Date: 20061010
  Receipt Date: 20060927
  Transmission Date: 20070319
  Serious: Yes (Other)
  Sender: FDA-Public Use
  Company Number: 2006119407

PATIENT
  Age: 69 Year
  Sex: Male
  Weight: 92.9874 kg

DRUGS (4)
  1. CHANTIX [Suspect]
     Indication: SMOKING CESSATION THERAPY
     Dosage: 0.5 MG
     Dates: start: 20060809
  2. CARDIZEM [Concomitant]
  3. ASPIRIN [Concomitant]
  4. FLUOXETINE [Concomitant]

REACTIONS (6)
  - ARTERIAL DISORDER [None]
  - DRUG INEFFECTIVE [None]
  - DRUG WITHDRAWAL SYNDROME [None]
  - MUSCLE TIGHTNESS [None]
  - PAIN [None]
  - WEIGHT INCREASED [None]
